FAERS Safety Report 12311152 (Version 1)
Quarter: 2016Q2

REPORT INFORMATION
  Report Type: Spontaneous
  Country: US (occurrence: US)
  Receive Date: 20160427
  Receipt Date: 20160427
  Transmission Date: 20160815
  Serious: Yes (Life-Threatening)
  Sender: FDA-Public Use
  Company Number: US-LPDUSPRD-20160353

PATIENT
  Age: 19 Year
  Sex: Male

DRUGS (5)
  1. BUPIVACAINE. [Suspect]
     Active Substance: BUPIVACAINE
     Dosage: TOTAL OF 35ML
     Route: 042
  2. FENANYL [Suspect]
     Active Substance: FENTANYL
     Dosage: 50 ??G THEN 25 ??G BOLUS
     Route: 042
  3. MIDAZOLAM [Concomitant]
     Active Substance: MIDAZOLAM\MIDAZOLAM HYDROCHLORIDE
     Dosage: 4 MG
     Route: 042
  4. EPINEPHRINE INJECTION, USP (1071-25) [Suspect]
     Active Substance: EPINEPHRINE
     Dosage: SEE NARRATIVE
     Route: 065
  5. PROPOFOL. [Concomitant]
     Active Substance: PROPOFOL
     Dosage: 75 ??G/KG/MIN
     Route: 042

REACTIONS (3)
  - Hypotension [Unknown]
  - Cardiac arrest [Unknown]
  - Bradycardia [Unknown]
